FAERS Safety Report 4534486-9 (Version None)
Quarter: 2004Q4

REPORT INFORMATION
  Report Type: 
  Country: None (occurrence: None)
  Receive Date: 20041222
  Receipt Date: 20041208
  Transmission Date: 20050328
  Serious: Yes (Other)
  Sender: FDA-Public Use
  Company Number: DEWYE267709DEC04

PATIENT
  Age: 64 Year
  Sex: Female

DRUGS (8)
  1. ENBREL [Suspect]
     Indication: RHEUMATOID ARTHRITIS
     Dates: start: 20040513
  2. ACTONEL (PROCTOR + GAMBLE) [Concomitant]
  3. IRBESARTAN [Concomitant]
  4. COLECALCIFEROL [Concomitant]
  5. CALCIUM [Concomitant]
  6. DECORTIN-H [Concomitant]
  7. VIOXX [Concomitant]
     Route: 048
  8. LANTAREL [Concomitant]

REACTIONS (3)
  - DYSPNOEA [None]
  - MEDIASTINAL DISORDER [None]
  - PLEURAL EFFUSION [None]
